FAERS Safety Report 10178931 (Version 1)
Quarter: 2014Q2

REPORT INFORMATION
  Report Type: Spontaneous
  Country: US (occurrence: None)
  Receive Date: 20140516
  Receipt Date: 20140516
  Transmission Date: 20141212
  Serious: No
  Sender: FDA-Public Use
  Company Number: None

PATIENT
  Age: 73 Year
  Sex: Female
  Weight: 79.38 kg

DRUGS (4)
  1. IMODIUM [Suspect]
     Indication: DIARRHOEA
     Dosage: APRIL ?3 OR 4 DAYS?3 TIMES A DAY?BY MOUTH
     Route: 048
  2. IMODIUM [Suspect]
     Indication: DIZZINESS
     Dosage: APRIL ?3 OR 4 DAYS?3 TIMES A DAY?BY MOUTH
     Route: 048
  3. MECLIZINE [Suspect]
     Indication: DIARRHOEA
     Dosage: APRIL ?3 OR 4 DAYS?3 TIMES A DAY?BY MOUTH
     Route: 048
  4. MECLIZINE [Suspect]
     Indication: DIZZINESS
     Dosage: APRIL ?3 OR 4 DAYS?3 TIMES A DAY?BY MOUTH
     Route: 048

REACTIONS (2)
  - Dizziness [None]
  - Impaired driving ability [None]
